FAERS Safety Report 5532497-8 (Version None)
Quarter: 2007Q4

REPORT INFORMATION
  Report Type: 
  Country: None (occurrence: None)
  Receive Date: 20071203
  Receipt Date: 20071121
  Transmission Date: 20080405
  Serious: Yes (Hospitalization)
  Sender: FDA-Public Use
  Company Number: GB-PFIZER INC-2007098856

PATIENT
  Age: 12 Year
  Sex: Male

DRUGS (2)
  1. PHENYTOIN SUSPENSION [Suspect]
     Indication: CONVULSION
     Route: 048
  2. NEORAL [Interacting]
     Indication: HISTIOCYTOSIS HAEMATOPHAGIC
     Route: 048

REACTIONS (3)
  - CONVULSION [None]
  - DRUG INTERACTION [None]
  - DRUG LEVEL BELOW THERAPEUTIC [None]
